FAERS Safety Report 14917842 (Version 2)
Quarter: 2018Q2

REPORT INFORMATION
  Report Type: Report from Study
  Country: GB (occurrence: GB)
  Receive Date: 20180521
  Receipt Date: 20180526
  Transmission Date: 20180711
  Serious: Yes (Other)
  Sender: FDA-Public Use
  Company Number: GB-TEVA-2018-GB-895247

PATIENT
  Age: 50 Year
  Sex: Female

DRUGS (6)
  1. CARBAMAZEPINE. [Suspect]
     Active Substance: CARBAMAZEPINE
     Indication: MULTIPLE SCLEROSIS
  2. BACLOFEN. [Suspect]
     Active Substance: BACLOFEN
     Indication: MULTIPLE SCLEROSIS
     Route: 065
     Dates: start: 20160315
  3. CARBAMAZEPINE. [Suspect]
     Active Substance: CARBAMAZEPINE
     Indication: PAIN
     Dosage: 100 MILLIGRAM DAILY;
     Route: 065
     Dates: start: 20131201
  4. GILENYA [Suspect]
     Active Substance: FINGOLIMOD HYDROCHLORIDE
     Indication: MULTIPLE SCLEROSIS
     Dosage: .5 MILLIGRAM DAILY;
     Route: 048
     Dates: start: 20150622
  5. BACLOFEN. [Suspect]
     Active Substance: BACLOFEN
     Indication: MUSCLE SPASMS
     Dosage: 20 MILLIGRAM DAILY;
     Route: 065
  6. GILENYA [Suspect]
     Active Substance: FINGOLIMOD HYDROCHLORIDE
     Dosage: .5 MILLIGRAM DAILY;
     Route: 048
     Dates: start: 20140714, end: 20140924

REACTIONS (13)
  - White blood cell count decreased [Recovered/Resolved]
  - Product use in unapproved indication [Unknown]
  - Paraesthesia [Unknown]
  - Restlessness [Unknown]
  - Lower respiratory tract infection [Unknown]
  - Neutrophil count decreased [Unknown]
  - Alanine aminotransferase increased [Unknown]
  - Insomnia [Unknown]
  - Lymphocyte count decreased [Unknown]
  - Upper respiratory tract infection [Recovered/Resolved]
  - Gamma-glutamyltransferase increased [Unknown]
  - Tremor [Unknown]
  - Blood alkaline phosphatase increased [Unknown]

NARRATIVE: CASE EVENT DATE: 20140923
